FAERS Safety Report 24926761 (Version 1)
Quarter: 2025Q1

REPORT INFORMATION
  Report Type: Spontaneous
  Country: US (occurrence: US)
  Receive Date: 20250205
  Receipt Date: 20250205
  Transmission Date: 20250409
  Serious: Yes (Hospitalization, Other)
  Sender: GLAND PHARMA LTD
  Company Number: US-GLANDPHARMA-US-2025GLNLIT00154

PATIENT
  Age: 70 Year
  Sex: Male

DRUGS (1)
  1. HEPARIN SODIUM [Suspect]
     Active Substance: HEPARIN SODIUM
     Indication: Acute kidney injury
     Route: 065

REACTIONS (3)
  - Hyperkalaemia [Recovered/Resolved]
  - Hypoaldosteronism [Recovered/Resolved]
  - Product use in unapproved indication [Unknown]
